FAERS Safety Report 5052746-2 (Version None)
Quarter: 2006Q3

REPORT INFORMATION
  Report Type: 
  Country: None (occurrence: None)
  Receive Date: 20060717
  Receipt Date: 20060706
  Transmission Date: 20061208
  Serious: Yes (Hospitalization)
  Sender: FDA-Public Use
  Company Number: CA-MERCK-0607CAN00031

PATIENT
  Age: 70 Year
  Sex: Female

DRUGS (11)
  1. ZETIA [Suspect]
     Route: 048
     Dates: start: 20060201, end: 20060401
  2. ZETIA [Suspect]
     Route: 048
     Dates: start: 20060401
  3. ROSUVASTATIN CALCIUM [Suspect]
     Route: 065
     Dates: start: 20050701, end: 20060401
  4. ROSUVASTATIN CALCIUM [Suspect]
     Route: 065
     Dates: start: 20050401, end: 20050701
  5. VALSARTAN [Concomitant]
     Route: 065
  6. ASPIRIN [Concomitant]
     Route: 065
  7. HYDROCHLOROTHIAZIDE [Concomitant]
     Route: 065
  8. ATENOLOL [Concomitant]
     Route: 065
  9. DIMENHYDRINATE [Concomitant]
     Route: 065
  10. ASPIRIN AND CAFFEINE, CITRATED AND CODEINE PHOSPHATE [Concomitant]
     Indication: MYALGIA
     Route: 065
  11. ASPIRIN AND CAFFEINE, CITRATED AND CODEINE PHOSPHATE [Concomitant]
     Route: 065

REACTIONS (3)
  - RENAL FAILURE ACUTE [None]
  - RHABDOMYOLYSIS [None]
  - URINARY TRACT INFECTION [None]
